FAERS Safety Report 4291439-6 (Version None)
Quarter: 2004Q1

REPORT INFORMATION
  Report Type: 
  Country: None (occurrence: None)
  Receive Date: 20040211
  Receipt Date: 20040202
  Transmission Date: 20041129
  Serious: Yes (Hospitalization)
  Sender: FDA-Public Use
  Company Number: US-BRISTOL-MYERS SQUIBB COMPANY-12494431

PATIENT
  Age: 62 Year
  Sex: Female
  Weight: 132 kg

DRUGS (6)
  1. COUMADIN [Suspect]
     Indication: ATRIAL FIBRILLATION
     Dosage: NOV-03 5MG/OD COUMADIN STOPPED; RESTARTED ON 12/31/03 2.5MG/OD
     Route: 048
     Dates: start: 20031101
  2. TOPROL-XL [Concomitant]
  3. NORVASC [Concomitant]
  4. ACCUPRIL [Concomitant]
  5. LASIX [Concomitant]
  6. ELAVIL [Concomitant]

REACTIONS (5)
  - ATRIAL FIBRILLATION [None]
  - HAEMATURIA [None]
  - INFLUENZA [None]
  - PROTHROMBIN TIME PROLONGED [None]
  - RENAL NEOPLASM [None]
